FAERS Safety Report 14772951 (Version 1)
Quarter: 2018Q2

REPORT INFORMATION
  Report Type: Spontaneous
  Country: US (occurrence: US)
  Receive Date: 20180418
  Receipt Date: 20180418
  Transmission Date: 20180711
  Serious: No
  Sender: FDA-Public Use
  Company Number: US-AUROBINDO-AUR-APU-2018-017000

PATIENT
  Sex: Male
  Weight: 77 kg

DRUGS (1)
  1. PANTOPRAZOLE INJECTION 40 MG/VIAL [Suspect]
     Active Substance: PANTOPRAZOLE
     Indication: GASTRIC PH INCREASED
     Dosage: UNK
     Route: 042
     Dates: start: 20170829, end: 20170830

REACTIONS (2)
  - Urticaria [Recovered/Resolved]
  - Rash pruritic [Recovered/Resolved]
